FAERS Safety Report 12456508 (Version 1)
Quarter: 2016Q2

REPORT INFORMATION
  Report Type: Spontaneous
  Country: FR (occurrence: FR)
  Receive Date: 20160610
  Receipt Date: 20160610
  Transmission Date: 20160815
  Serious: Yes (Hospitalization, Other)
  Sender: FDA-Public Use
  Company Number: FR-ELI_LILLY_AND_COMPANY-FR201606001652

PATIENT
  Age: 86 Year
  Sex: Female

DRUGS (10)
  1. PROTHIADEN [Concomitant]
     Active Substance: DOTHIEPIN HYDROCHLORIDE
     Indication: DEPRESSION
     Dosage: UNK
     Route: 048
     Dates: end: 201509
  2. LERCANIDIPINE [Concomitant]
     Active Substance: LERCANIDIPINE
     Indication: HYPERTENSION
     Dosage: UNK
     Route: 048
     Dates: end: 201602
  3. PARACETAMOL [Concomitant]
     Active Substance: ACETAMINOPHEN
     Route: 048
  4. ASASANTINE [Concomitant]
     Active Substance: ASPIRIN\DIPYRIDAMOLE
     Route: 048
  5. COLCHIMAX                          /00728901/ [Concomitant]
     Active Substance: COLCHICINE\DICYCLOMINE HYDROCHLORIDE
     Dosage: UNK
     Route: 048
     Dates: end: 201601
  6. TIAPRIDAL [Concomitant]
     Active Substance: TIAPRIDE HYDROCHLORIDE
     Dosage: UNK
     Route: 048
     Dates: end: 201509
  7. TEMESTA                            /00273201/ [Concomitant]
     Active Substance: LORAZEPAM
     Route: 048
  8. FORSTEO [Suspect]
     Active Substance: TERIPARATIDE
     Indication: OSTEOPOROSIS
     Dosage: UNK, UNKNOWN
     Route: 058
     Dates: start: 201406, end: 20150914
  9. XATRAL [Concomitant]
     Active Substance: ALFUZOSIN
     Dosage: UNK
     Route: 048
     Dates: end: 201509
  10. BISOPROLOL [Concomitant]
     Active Substance: BISOPROLOL
     Dosage: UNK
     Dates: start: 201601

REACTIONS (10)
  - Low density lipoprotein increased [Recovered/Resolved]
  - Aortic stenosis [Recovered/Resolved]
  - Altered state of consciousness [Unknown]
  - Fall [Unknown]
  - Atrioventricular block complete [Recovered/Resolved]
  - Heart valve incompetence [Recovered/Resolved]
  - Syncope [Unknown]
  - Pericardial effusion [Unknown]
  - Blood calcium decreased [Recovered/Resolved]
  - Aortic valve calcification [Recovered/Resolved]

NARRATIVE: CASE EVENT DATE: 20150914
